FAERS Safety Report 6677300-8 (Version None)
Quarter: 2010Q2

REPORT INFORMATION
  Report Type: 
  Country: None (occurrence: None)
  Receive Date: 20100408
  Receipt Date: 20100408
  Transmission Date: 20101027
  Serious: No
  Sender: FDA-Public Use
  Company Number: None

PATIENT
  Sex: Female

DRUGS (1)
  1. DILANTIN [Suspect]
     Indication: CONVULSION
     Dosage: 100 MG

REACTIONS (2)
  - LABORATORY TEST ABNORMAL [None]
  - PRODUCT SUBSTITUTION ISSUE [None]
